APPROVED DRUG PRODUCT: MEPROBAMATE AND ASPIRIN
Active Ingredient: ASPIRIN; MEPROBAMATE
Strength: 325MG;200MG
Dosage Form/Route: TABLET;ORAL
Application: A089126 | Product #001
Applicant: PAR PHARMACEUTICAL INC
Approved: Aug 19, 1986 | RLD: No | RS: No | Type: DISCN